FAERS Safety Report 8320262-8 (Version None)
Quarter: 2012Q2

REPORT INFORMATION
  Report Type: 
  Country: None (occurrence: None)
  Receive Date: 20120426
  Receipt Date: 20120426
  Transmission Date: 20120825
  Serious: Yes (Hospitalization)
  Sender: FDA-Public Use
  Company Number: None

PATIENT
  Sex: Female
  Weight: 83 kg

DRUGS (3)
  1. CARBOPLATIN [Suspect]
     Dosage: 496 MG
  2. TAXOL [Suspect]
     Dosage: 318.5 MG
  3. CISPLATIN [Suspect]
     Dosage: 93 MG

REACTIONS (6)
  - RED BLOOD CELL COUNT DECREASED [None]
  - FATIGUE [None]
  - WHITE BLOOD CELL COUNT DECREASED [None]
  - NEUTROPHIL COUNT DECREASED [None]
  - HAEMATOCRIT DECREASED [None]
  - HAEMOGLOBIN DECREASED [None]
